FAERS Safety Report 15311326 (Version 1)
Quarter: 2018Q3

REPORT INFORMATION
  Report Type: Other
  Country: FR (occurrence: FR)
  Receive Date: 20180823
  Receipt Date: 20180823
  Transmission Date: 20181010
  Serious: Yes (Hospitalization, Other)
  Sender: FDA-Public Use
  Company Number: FR-APOTEX-2018AP019269

PATIENT
  Age: 88 Year
  Sex: Female

DRUGS (2)
  1. PLAVIX [Suspect]
     Active Substance: CLOPIDOGREL BISULFATE
     Indication: ISCHAEMIC STROKE
     Dosage: 1 DF, UNK
     Route: 048
     Dates: start: 20170625, end: 20170723
  2. PAROXETINE TABLET [Suspect]
     Active Substance: PAROXETINE
     Dosage: 1 DF, UNK
     Route: 048
     Dates: start: 20170715, end: 201708

REACTIONS (1)
  - Agranulocytosis [Recovered/Resolved]

NARRATIVE: CASE EVENT DATE: 20170723
